FAERS Safety Report 8143219-9 (Version None)
Quarter: 2012Q1

REPORT INFORMATION
  Report Type: 
  Country: None (occurrence: None)
  Receive Date: 20120217
  Receipt Date: 20120206
  Transmission Date: 20120608
  Serious: Yes (Other)
  Sender: FDA-Public Use
  Company Number: BR-AMGEN-BRASP2012009037

PATIENT
  Age: 53 Year
  Sex: Female
  Weight: 62 kg

DRUGS (9)
  1. CAPTOPRIL [Concomitant]
     Dosage: UNK
  2. OMEPRAZOLE [Concomitant]
     Dosage: UNK
  3. ENBREL [Suspect]
     Indication: RHEUMATOID ARTHRITIS
     Dosage: 50 MG, WEEKLY
     Route: 058
     Dates: start: 20110805, end: 20111201
  4. MELOXICAM [Concomitant]
     Dosage: UNK
  5. METHOTREXATE [Concomitant]
     Dosage: UNK
  6. PARACETAMOL [Concomitant]
     Indication: PAIN
     Dosage: UNK, AS NEEDED
  7. LEVOTHYROXINE SODIUM [Concomitant]
     Dosage: UNK
  8. ENBREL [Suspect]
     Dosage: UNK
     Route: 058
     Dates: end: 20111201
  9. FOLIC ACID [Concomitant]
     Dosage: UNK

REACTIONS (3)
  - ERYTHEMA [None]
  - PRURITUS [None]
  - HYPERSENSITIVITY [None]
